FAERS Safety Report 5374336-4 (Version None)
Quarter: 2007Q2

REPORT INFORMATION
  Report Type: 
  Country: None (occurrence: None)
  Receive Date: 20070629
  Receipt Date: 20070620
  Transmission Date: 20071010
  Serious: Yes (Other)
  Sender: FDA-Public Use
  Company Number: PHBS2007DE10447

PATIENT
  Age: 81 Year
  Sex: Female

DRUGS (2)
  1. ZOMETA [Suspect]
     Indication: METASTASES TO BONE
  2. BONDRONAT [Suspect]

REACTIONS (3)
  - ACTINOMYCOSIS [None]
  - BONE DISORDER [None]
  - OSTEONECROSIS [None]
